FAERS Safety Report 6230674-4 (Version None)
Quarter: 2009Q2

REPORT INFORMATION
  Report Type: 
  Country: None (occurrence: None)
  Receive Date: 20090611
  Receipt Date: 20090527
  Transmission Date: 20091009
  Serious: Yes (Hospitalization)
  Sender: FDA-Public Use
  Company Number: 2008002351

PATIENT
  Age: 78 Year
  Sex: Female

DRUGS (4)
  1. ERLOTINIB (ERLOTINIB) (TABLET) (ERLOTINIB) [Suspect]
     Indication: LUNG NEOPLASM MALIGNANT
     Dosage: ORAL
     Route: 048
  2. ATARAX (HYDROZYSINE HYDROCHLORIDE) [Concomitant]
  3. VASTAREL (TRIMETAZIDINE) [Concomitant]
  4. LOVENOX [Concomitant]

REACTIONS (4)
  - FOLLICULITIS [None]
  - GASTROINTESTINAL DISORDER [None]
  - GENERAL PHYSICAL HEALTH DETERIORATION [None]
  - SCAB [None]
